FAERS Safety Report 14304507 (Version 1)
Quarter: 2017Q4

REPORT INFORMATION
  Report Type: Spontaneous
  Country: US (occurrence: US)
  Receive Date: 20171219
  Receipt Date: 20171219
  Transmission Date: 20180321
  Serious: Yes (Hospitalization)
  Sender: FDA-Public Use
  Company Number: US-OTSUKA-15962178

PATIENT
  Age: 25 Year
  Sex: Male

DRUGS (1)
  1. ABILIFY [Suspect]
     Active Substance: ARIPIPRAZOLE
     Indication: PRODUCT USED FOR UNKNOWN INDICATION
     Dosage: DOSE INCREASED TO 4MG AND STOPPED; RESTARTED AGAIN WITH 20MG
     Route: 065
     Dates: start: 201008

REACTIONS (4)
  - Nausea [Unknown]
  - Insomnia [Unknown]
  - Hallucination [Unknown]
  - Asthenia [Unknown]
